FAERS Safety Report 11365500 (Version 3)
Quarter: 2017Q3

REPORT INFORMATION
  Report Type: Spontaneous
  Country: US (occurrence: US)
  Receive Date: 20150811
  Receipt Date: 20170726
  Transmission Date: 20171127
  Serious: Yes (Other)
  Sender: FDA-Public Use
  Company Number: US-CELGENEUS-USA-2015076512

PATIENT
  Sex: Male
  Weight: 79.45 kg

DRUGS (6)
  1. THALOMID [Suspect]
     Active Substance: THALIDOMIDE
     Indication: APHTHOUS ULCER
     Dosage: 50 - 100MG
     Route: 048
     Dates: start: 201201
  2. THALOMID [Suspect]
     Active Substance: THALIDOMIDE
     Dosage: 100 MILLIGRAM
     Route: 048
     Dates: start: 201507
  3. THALOMID [Suspect]
     Active Substance: THALIDOMIDE
     Dosage: 50 MILLIGRAM
     Route: 048
     Dates: start: 201409
  4. THALOMID [Suspect]
     Active Substance: THALIDOMIDE
     Dosage: 50 - 100MG
     Route: 048
     Dates: start: 201308
  5. THALOMID [Suspect]
     Active Substance: THALIDOMIDE
     Dosage: 50 MILLIGRAM
     Route: 048
     Dates: start: 201707
  6. THALOMID [Suspect]
     Active Substance: THALIDOMIDE
     Indication: GLOSSITIS
     Dosage: 100 MILLIGRAM
     Route: 048
     Dates: start: 201107

REACTIONS (2)
  - Mouth ulceration [Unknown]
  - Anxiety [Unknown]
